FAERS Safety Report 5689464-3 (Version None)
Quarter: 2008Q1

REPORT INFORMATION
  Report Type: 
  Country: None (occurrence: None)
  Receive Date: 20080331
  Receipt Date: 20080321
  Transmission Date: 20080703
  Serious: Yes (Other)
  Sender: FDA-Public Use
  Company Number: JP-PFIZER INC-2008024428

PATIENT
  Age: 65 Year
  Sex: Male

DRUGS (2)
  1. AMLODIN [Suspect]
     Dosage: DAILY DOSE:10MG-FREQ:QD
  2. KLARICID [Suspect]

REACTIONS (2)
  - BLOOD CREATININE INCREASED [None]
  - BLOOD UREA INCREASED [None]
